FAERS Safety Report 10253696 (Version 2)
Quarter: 2014Q3

REPORT INFORMATION
  Report Type: Spontaneous
  Country: GB (occurrence: GB)
  Receive Date: 20140623
  Receipt Date: 20140724
  Transmission Date: 20150326
  Serious: Yes (Death)
  Sender: FDA-Public Use
  Company Number: GB-BAXTER-2014BAX030920

PATIENT
  Sex: Female

DRUGS (3)
  1. NUTRINEAL PD4 [Suspect]
     Active Substance: AMINO ACIDS\CALCIUM CHLORIDE\MAGNESIUM CHLORIDE\SODIUM CHLORIDE\SODIUM LACTATE
     Indication: PERITONEAL DIALYSIS
     Route: 033
  2. OXYGEN. [Concomitant]
     Active Substance: OXYGEN
     Indication: PRODUCT USED FOR UNKNOWN INDICATION
  3. NUTRINEAL PD4 [Suspect]
     Active Substance: AMINO ACIDS\CALCIUM CHLORIDE\MAGNESIUM CHLORIDE\SODIUM CHLORIDE\SODIUM LACTATE
     Indication: OFF LABEL USE
     Dosage: 6 LITRES
     Route: 033

REACTIONS (3)
  - C-reactive protein increased [Unknown]
  - Wrong drug administered [Unknown]
  - Death [Fatal]

NARRATIVE: CASE EVENT DATE: 20140610
